FAERS Safety Report 5426025-5 (Version None)
Quarter: 2007Q3

REPORT INFORMATION
  Report Type: 
  Country: None (occurrence: None)
  Receive Date: 20070827
  Receipt Date: 20070815
  Transmission Date: 20080115
  Serious: Yes (Hospitalization)
  Sender: FDA-Public Use
  Company Number: ES-AMGEN-UK239920

PATIENT
  Sex: Male
  Weight: 59.5 kg

DRUGS (2)
  1. PANITUMUMAB [Suspect]
     Indication: COLORECTAL CANCER
     Route: 042
     Dates: start: 20070724
  2. IRINOTECAN HCL [Suspect]
     Route: 042

REACTIONS (6)
  - ABDOMINAL PAIN [None]
  - ASTHENIA [None]
  - DERMATITIS ACNEIFORM [None]
  - GASTROINTESTINAL TOXICITY [None]
  - PANCYTOPENIA [None]
  - PYREXIA [None]
